FAERS Safety Report 9288401 (Version 1)
Quarter: 2013Q2

REPORT INFORMATION
  Report Type: Spontaneous
  Country: US (occurrence: None)
  Receive Date: 20130513
  Receipt Date: 20130513
  Transmission Date: 20140414
  Serious: Yes (Disabling)
  Sender: FDA-Public Use
  Company Number: None

PATIENT
  Age: 44 Year
  Sex: Male
  Weight: 81.65 kg

DRUGS (1)
  1. SEROQUEL XR [Suspect]
     Indication: INSOMNIA
     Dosage: 50 MG DAILY AT NIGHT PO
     Route: 048
     Dates: start: 20111101, end: 20120601

REACTIONS (3)
  - Tardive dyskinesia [None]
  - Impaired driving ability [None]
  - Activities of daily living impaired [None]
